FAERS Safety Report 18289072 (Version 1)
Quarter: 2020Q3

REPORT INFORMATION
  Report Type: Spontaneous
  Country: US (occurrence: US)
  Receive Date: 20200921
  Receipt Date: 20200921
  Transmission Date: 20201103
  Serious: No
  Sender: FDA-Public Use
  Company Number: US-HORIZON-TEP-2013-2020

PATIENT
  Sex: Female

DRUGS (6)
  1. LEVODOPA/CARBIDOPA [Concomitant]
     Active Substance: CARBIDOPA\LEVODOPA
  2. CLONAZEPAM. [Concomitant]
     Active Substance: CLONAZEPAM
  3. PROLIA [Concomitant]
     Active Substance: DENOSUMAB
  4. LESOTHO [Concomitant]
  5. TEPEZZA [Suspect]
     Active Substance: TEPROTUMUMAB-TRBW
     Indication: PRODUCT USED FOR UNKNOWN INDICATION
  6. CELEBREX [Concomitant]
     Active Substance: CELECOXIB

REACTIONS (3)
  - Eustachian tube disorder [Unknown]
  - Tremor [Unknown]
  - Muscle spasms [Unknown]
